FAERS Safety Report 9701164 (Version 1)
Quarter: 2013Q4

REPORT INFORMATION
  Report Type: Spontaneous
  Country: US (occurrence: US)
  Receive Date: 20131121
  Receipt Date: 20131121
  Transmission Date: 20140711
  Serious: No
  Sender: FDA-Public Use
  Company Number: US-GILEAD-2008-0015862

PATIENT
  Age: 79 Year
  Sex: Female

DRUGS (9)
  1. LETAIRIS [Suspect]
     Indication: PULMONARY ARTERIAL HYPERTENSION
     Route: 048
     Dates: start: 20080228, end: 20080301
  2. FUROSEMIDE [Concomitant]
  3. AMLODIPINE [Concomitant]
  4. POTASSIUM CHLORIDE [Concomitant]
  5. RANITIDINE [Concomitant]
  6. BABY ASPIRIN [Concomitant]
  7. ZYRTEC [Concomitant]
  8. COD LIVER OIL [Concomitant]
  9. TYLENOL [Concomitant]

REACTIONS (2)
  - Eye swelling [None]
  - Abdominal discomfort [None]
